FAERS Safety Report 7086124-1 (Version None)
Quarter: 2010Q4

REPORT INFORMATION
  Report Type: 
  Country: None (occurrence: None)
  Receive Date: 20101105
  Receipt Date: 20101028
  Transmission Date: 20110411
  Serious: Yes (Hospitalization)
  Sender: FDA-Public Use
  Company Number: B0681647A

PATIENT
  Sex: Male

DRUGS (7)
  1. FORTUM [Suspect]
     Indication: WOUND INFECTION
     Route: 042
     Dates: start: 20100903, end: 20101007
  2. VANCOMYCIN HCL [Suspect]
     Indication: WOUND INFECTION
     Route: 042
     Dates: start: 20100914, end: 20100928
  3. ASPEGIC 1000 [Concomitant]
     Route: 048
  4. SERESTA [Concomitant]
     Route: 048
  5. METFORMIN HCL [Concomitant]
     Route: 048
  6. DAFALGAN [Concomitant]
     Indication: PAIN
     Route: 048
  7. CIFLOX [Concomitant]
     Route: 065
     Dates: start: 20100903, end: 20101007

REACTIONS (4)
  - DRUG RASH WITH EOSINOPHILIA AND SYSTEMIC SYMPTOMS [None]
  - EOSINOPHILIA [None]
  - RASH [None]
  - RENAL FAILURE [None]
